FAERS Safety Report 22068745 (Version 1)
Quarter: 2023Q1

REPORT INFORMATION
  Report Type: Spontaneous
  Country: US (occurrence: None)
  Receive Date: 20230303
  Receipt Date: 20230303
  Transmission Date: 20230418
  Serious: No
  Sender: FDA-Public Use
  Company Number: None

PATIENT
  Sex: Male

DRUGS (14)
  1. RISPERIDONE [Suspect]
     Active Substance: RISPERIDONE
     Indication: Depersonalisation/derealisation disorder
     Dosage: OTHER FREQUENCY : 1 MORNING 2 BEDTIM;?
     Route: 048
     Dates: start: 202301, end: 20230217
  2. BIMATAPROST [Concomitant]
  3. BRIMONIDINE TARTRATE [Concomitant]
     Active Substance: BRIMONIDINE TARTRATE
  4. DORZOLAMIDE AND TIMOLOL [Concomitant]
     Active Substance: DORZOLAMIDE HYDROCHLORIDE\TIMOLOL MALEATE
  5. AMLODIPINE [Concomitant]
     Active Substance: AMLODIPINE BESYLATE
  6. CLONAZEPAM [Concomitant]
     Active Substance: CLONAZEPAM
  7. VITAMIN D [Concomitant]
     Active Substance: VITAMIN D NOS
  8. VTAMIN C [Concomitant]
  9. VTAMIN E [Concomitant]
  10. VTAMIN B1 [Concomitant]
  11. VTAMIN B6 [Concomitant]
  12. VTAMIN B12 [Concomitant]
  13. ZINC [Concomitant]
     Active Substance: ZINC
  14. OCUVITE [Concomitant]
     Active Substance: VITAMINS

REACTIONS (1)
  - Condition aggravated [None]

NARRATIVE: CASE EVENT DATE: 20230101
